FAERS Safety Report 10696148 (Version 4)
Quarter: 2015Q1

REPORT INFORMATION
  Report Type: Spontaneous
  Country: US (occurrence: US)
  Receive Date: 20150107
  Receipt Date: 20150130
  Transmission Date: 20150721
  Serious: Yes (Hospitalization)
  Sender: FDA-Public Use
  Company Number: US-UNITED THERAPEUTICS-UNT-2014-012422

PATIENT
  Age: 53 Year
  Sex: Female
  Weight: 65.76 kg

DRUGS (7)
  1. REMODULIN [Suspect]
     Active Substance: TREPROSTINIL
     Dosage: 0.054 ?G/KG/MIN, CONTINUING
     Route: 041
     Dates: start: 20060518
  2. REMODULIN [Suspect]
     Active Substance: TREPROSTINIL
     Dosage: 0.055 ?G/KG, CONTINUING
     Route: 041
     Dates: start: 20071031
  3. REVATIO [Concomitant]
     Active Substance: SILDENAFIL CITRATE
     Indication: PRODUCT USED FOR UNKNOWN INDICATION
  4. WARFARIN [Concomitant]
     Active Substance: WARFARIN
     Indication: PRODUCT USED FOR UNKNOWN INDICATION
  5. REMODULIN [Suspect]
     Active Substance: TREPROSTINIL
     Indication: PULMONARY ARTERIAL HYPERTENSION
     Dosage: 0.054 ?G/KG/MIN, CONTINUING
     Route: 041
     Dates: start: 20060518
  6. REMODULIN [Suspect]
     Active Substance: TREPROSTINIL
     Dosage: 0.055 ?G/KG, CONTINUING
     Route: 041
     Dates: start: 20141218
  7. REMODULIN [Suspect]
     Active Substance: TREPROSTINIL
     Dosage: 0.055 ?G/KG, CONTINUING
     Route: 041
     Dates: start: 20130112

REACTIONS (7)
  - Injection site erythema [Unknown]
  - Medical device complication [Unknown]
  - Device occlusion [Unknown]
  - Malaise [Unknown]
  - Drug dose omission [Unknown]
  - Injection site pruritus [Unknown]
  - Device issue [Unknown]

NARRATIVE: CASE EVENT DATE: 201412
